FAERS Safety Report 15252327 (Version 1)
Quarter: 2018Q3

REPORT INFORMATION
  Report Type: Spontaneous
  Country: US (occurrence: US)
  Receive Date: 20180717
  Receipt Date: 20180717
  Transmission Date: 20181010
  Serious: No
  Sender: FDA-Public Use
  Company Number: None

PATIENT
  Age: 58 Year
  Sex: Female
  Weight: 121.5 kg

DRUGS (11)
  1. DIAZEPAM. [Concomitant]
     Active Substance: DIAZEPAM
  2. PANTOPRAZOLE [Concomitant]
     Active Substance: PANTOPRAZOLE
  3. LOPERAMIDE [Concomitant]
     Active Substance: LOPERAMIDE
  4. ACETAMINOPHEN. [Concomitant]
     Active Substance: ACETAMINOPHEN
  5. CHOLESTYRAMINE FOR ORAL SUSPENSION USP POWDER [Suspect]
     Active Substance: CHOLESTYRAMINE
     Indication: DIARRHOEA
     Dosage: ?          QUANTITY:1 SCOOP;?
     Route: 048
     Dates: start: 20180612, end: 20180622
  6. GABAPENTIN. [Concomitant]
     Active Substance: GABAPENTIN
  7. IBUPROFEN. [Concomitant]
     Active Substance: IBUPROFEN
  8. MIRTAZAPINE. [Concomitant]
     Active Substance: MIRTAZAPINE
  9. METOPROLOL. [Concomitant]
     Active Substance: METOPROLOL
  10. OMEPRAZOLE. [Concomitant]
     Active Substance: OMEPRAZOLE
  11. WELCHOL [Suspect]
     Active Substance: COLESEVELAM HYDROCHLORIDE
     Indication: DIARRHOEA
     Dosage: ?          QUANTITY:3 TABLET(S);?
     Route: 048
     Dates: start: 20180706, end: 20180713

REACTIONS (1)
  - Pain in jaw [None]

NARRATIVE: CASE EVENT DATE: 20180710
